FAERS Safety Report 4990406-4 (Version None)
Quarter: 2006Q2

REPORT INFORMATION
  Report Type: 
  Country: None (occurrence: None)
  Receive Date: 20060427
  Receipt Date: 20060419
  Transmission Date: 20061013
  Serious: Yes (Hospitalization)
  Sender: FDA-Public Use
  Company Number: HQWYE885120APR06

PATIENT
  Age: 73 Year
  Sex: Female

DRUGS (4)
  1. AMIODARONE (AMIODARONE, INJECTIO) [Suspect]
     Indication: ARRHYTHMIA
     Dosage: SEE IMAGE
     Route: 042
     Dates: start: 20060323, end: 20060101
  2. AMIODARONE (AMIODARONE, INJECTIO) [Suspect]
     Indication: ARRHYTHMIA
     Dosage: SEE IMAGE
     Route: 042
     Dates: end: 20060101
  3. AMIODARONE (AMIODARONE, INJECTIO) [Suspect]
     Indication: ARRHYTHMIA
     Dosage: SEE IMAGE
     Route: 042
     Dates: start: 20060101
  4. . [Concomitant]

REACTIONS (1)
  - HYPONATRAEMIA [None]
